FAERS Safety Report 13133281 (Version 1)
Quarter: 2017Q1

REPORT INFORMATION
  Report Type: Spontaneous
  Country: US (occurrence: US)
  Receive Date: 20170119
  Receipt Date: 20170119
  Transmission Date: 20170428
  Serious: Yes (Hospitalization)
  Sender: FDA-Public Use
  Company Number: None

PATIENT
  Sex: Female
  Weight: 35.4 kg

DRUGS (8)
  1. INTRATHECAL METHOTREXATE [Concomitant]
  2. MERCAPTOPURINE. [Concomitant]
     Active Substance: MERCAPTOPURINE
  3. HIGH DOSE METHOTREXATE HD MTX [Concomitant]
  4. METHOTREXATE. [Suspect]
     Active Substance: METHOTREXATE
     Dates: end: 20170104
  5. LEUCOVORIN. [Concomitant]
     Active Substance: LEUCOVORIN
  6. MERCAPTOPURINE. [Suspect]
     Active Substance: MERCAPTOPURINE
     Dates: end: 20170108
  7. VINCRISTINE SULFATE. [Suspect]
     Active Substance: VINCRISTINE SULFATE
     Dates: end: 20170104
  8. VINCRISTINE [Concomitant]
     Active Substance: VINCRISTINE

REACTIONS (11)
  - Haemorrhoids [None]
  - Anorectal discomfort [None]
  - Nystagmus [None]
  - Somnolence [None]
  - Diarrhoea [None]
  - Generalised tonic-clonic seizure [None]
  - Pyrexia [None]
  - Anal ulcer [None]
  - Visual acuity reduced [None]
  - Proctalgia [None]
  - Clostridium test positive [None]

NARRATIVE: CASE EVENT DATE: 20170109
